FAERS Safety Report 17349160 (Version 2)
Quarter: 2020Q3

REPORT INFORMATION
  Report Type: Report from Study
  Country: FR (occurrence: FR)
  Receive Date: 20200130
  Receipt Date: 20200717
  Transmission Date: 20201102
  Serious: Yes (Other)
  Sender: FDA-Public Use
  Company Number: FR-PFIZER INC-2020042389

PATIENT

DRUGS (2)
  1. GEMCITABINE HYDROCHLORIDE. [Suspect]
     Active Substance: GEMCITABINE HYDROCHLORIDE
     Indication: PANCREATIC CARCINOMA
     Dosage: 1000 MG/M2, CYCLIC (BY 30?MIN IV PERFUSION ON DAY 1 FOR 3 WEEKS, IN THE 28?DAY TREATMENT CYCLE)
     Route: 042
  2. ERYASPASE [Suspect]
     Active Substance: ASPARAGINASE
     Indication: PANCREATIC CARCINOMA
     Dosage: 100 IU/KG, CYCLIC, (IN THE 28?DAY TREATMENT CYCLE, INTRAVENOUS (IV) INFUSION ON DAYS 3 AND 17)
     Route: 042

REACTIONS (1)
  - Gamma-glutamyltransferase increased [Unknown]
